FAERS Safety Report 6763530-3 (Version None)
Quarter: 2010Q2

REPORT INFORMATION
  Report Type: 
  Country: None (occurrence: None)
  Receive Date: 20100610
  Receipt Date: 20100527
  Transmission Date: 20101027
  Serious: Yes (Hospitalization, Other)
  Sender: FDA-Public Use
  Company Number: PHHO2006AT08264

PATIENT
  Age: 43 Year
  Sex: Male

DRUGS (10)
  1. LEPONEX [Suspect]
     Indication: BIPOLAR DISORDER
     Dosage: UNK, UNK
     Dates: end: 20060211
  2. LEPONEX [Suspect]
     Dosage: 300 MG, UNK
     Dates: start: 20060212, end: 20060216
  3. LEPONEX [Suspect]
     Dosage: 400 MG, UNK
     Dates: start: 20060217, end: 20060225
  4. LEPONEX [Suspect]
     Dosage: 450 MG, UNK
     Dates: start: 20060226, end: 20060307
  5. LEPONEX [Suspect]
     Dosage: 150 MG, UNK
     Dates: start: 20060308, end: 20060309
  6. LEPONEX [Suspect]
     Dosage: 100MG
     Route: 048
     Dates: start: 20060314, end: 20060407
  7. LAMICTAL [Suspect]
     Dosage: 25 MG, UNK
     Dates: start: 20060221, end: 20060302
  8. LAMICTAL [Suspect]
     Dosage: 50 MG, UNK
     Dates: start: 20060303, end: 20060307
  9. LORAZEPAM [Concomitant]
     Dosage: UNK
  10. ALNA [Concomitant]

REACTIONS (13)
  - AGITATION [None]
  - ANTIPSYCHOTIC DRUG LEVEL BELOW THERAPEUTIC [None]
  - ANTIPSYCHOTIC DRUG LEVEL INCREASED [None]
  - BODY TEMPERATURE INCREASED [None]
  - C-REACTIVE PROTEIN INCREASED [None]
  - DELIRIUM [None]
  - DEPRESSION [None]
  - DISORIENTATION [None]
  - DIZZINESS [None]
  - DRUG INTERACTION [None]
  - DRUG TOXICITY [None]
  - RASH [None]
  - UPPER RESPIRATORY TRACT INFECTION [None]
